FAERS Safety Report 9506285 (Version 1)
Quarter: 2013Q1

REPORT INFORMATION
  Report Type: Spontaneous
  Country: US (occurrence: None)
  Receive Date: 20130305
  Receipt Date: 20130305
  Transmission Date: 20140127
  Serious: Yes (Hospitalization)
  Sender: FDA-Public Use
  Company Number: 163-21880-12051083

PATIENT
  Age: 85 Year
  Sex: Female

DRUGS (9)
  1. REVLIMID (LENALIDOMIDE) (CAPSULES) [Suspect]
     Indication: CHRONIC LYMPHOCYTIC LEUKAEMIA
     Dosage: 5 MG, 1 IN 1 D, PO
     Route: 048
     Dates: start: 20120413
  2. ASACOL (MESALAZINE) MODIFIED-RELEASE TABLET, 400 MG [Concomitant]
  3. ATENOLOL (ATENOLOL) [Concomitant]
  4. CENTRUM SILVER (CENTRUM SILVER) [Concomitant]
  5. FISH OIL (FISH OIL) [Concomitant]
  6. OMEPRAZOLE (OMEPRAZOLE) [Concomitant]
  7. RITUXAN (RITUXIMAB) [Concomitant]
  8. ULTRAM (TRAMADOL HYDROCHLORIDE) [Concomitant]
  9. VITAMIN D (ERGOCALCIFEROL) [Concomitant]

REACTIONS (1)
  - Urticaria [None]
